FAERS Safety Report 19839178 (Version 1)
Quarter: 2021Q3

REPORT INFORMATION
  Report Type: Spontaneous
  Country: US (occurrence: US)
  Receive Date: 20210915
  Receipt Date: 20210915
  Transmission Date: 20211014
  Serious: Yes (Other)
  Sender: FDA-Public Use
  Company Number: None

PATIENT
  Age: 5 Year
  Sex: Female

DRUGS (3)
  1. TRIAMCINOLONE ACETONIDE. [Suspect]
     Active Substance: TRIAMCINOLONE ACETONIDE
     Indication: ECZEMA
     Route: 061
     Dates: start: 20210318, end: 20210701
  2. DESONIDE 0.05% [Suspect]
     Active Substance: DESONIDE
  3. HYDROCORTISONE 2.5% [Suspect]
     Active Substance: HYDROCORTISONE

REACTIONS (5)
  - Erythema [None]
  - Condition aggravated [None]
  - Skin exfoliation [None]
  - Skin disorder [None]
  - Pruritus [None]

NARRATIVE: CASE EVENT DATE: 20210701
